FAERS Safety Report 8361784-3 (Version None)
Quarter: 2012Q2

REPORT INFORMATION
  Report Type: 
  Country: None (occurrence: None)
  Receive Date: 20120515
  Receipt Date: 20120510
  Transmission Date: 20120825
  Serious: Yes (Hospitalization)
  Sender: FDA-Public Use
  Company Number: US-GLAXOSMITHKLINE-A0958519A

PATIENT
  Age: 65 Year
  Sex: Male
  Weight: 77.3 kg

DRUGS (4)
  1. NEURONTIN [Concomitant]
  2. GLUCOTROL [Concomitant]
  3. LISINOPRIL [Concomitant]
  4. AVANDIA [Suspect]
     Indication: DIABETES MELLITUS
     Dosage: 4MG TWICE PER DAY
     Route: 048
     Dates: start: 20030101, end: 20080401

REACTIONS (5)
  - CORONARY ARTERY BYPASS [None]
  - MYOCARDIAL INFARCTION [None]
  - CARDIAC FAILURE CONGESTIVE [None]
  - ISCHAEMIC CARDIOMYOPATHY [None]
  - HYPERLIPIDAEMIA [None]
